FAERS Safety Report 10956431 (Version 1)
Quarter: 2015Q1

REPORT INFORMATION
  Report Type: Spontaneous
  Country: US (occurrence: None)
  Receive Date: 20150325
  Receipt Date: 20150325
  Transmission Date: 20150721
  Serious: Yes (Disabling)
  Sender: FDA-Public Use
  Company Number: None

PATIENT
  Age: 61 Year
  Sex: Female
  Weight: 68.04 kg

DRUGS (8)
  1. CYMBALTA [Concomitant]
     Active Substance: DULOXETINE HYDROCHLORIDE
  2. NABUMETONE. [Suspect]
     Active Substance: NABUMETONE
     Dosage: 1 PILL
     Route: 048
     Dates: start: 201309, end: 201502
  3. SYNTHROID [Concomitant]
     Active Substance: LEVOTHYROXINE SODIUM
  4. NABUMETONE. [Suspect]
     Active Substance: NABUMETONE
     Indication: PAIN MANAGEMENT
     Dosage: 1 PILL
     Route: 048
     Dates: start: 201309, end: 201502
  5. COPAXONE [Concomitant]
     Active Substance: GLATIRAMER ACETATE
  6. VITAMINS, E, B, C, D3 [Concomitant]
  7. CRESTOR [Concomitant]
     Active Substance: ROSUVASTATIN CALCIUM
  8. CENTRUM [Concomitant]
     Active Substance: VITAMINS

REACTIONS (5)
  - Musculoskeletal pain [None]
  - Musculoskeletal stiffness [None]
  - Neck pain [None]
  - Bone pain [None]
  - Pain in extremity [None]

NARRATIVE: CASE EVENT DATE: 201307
